FAERS Safety Report 25282247 (Version 3)
Quarter: 2025Q2

REPORT INFORMATION
  Report Type: Report from Study
  Country: US (occurrence: US)
  Receive Date: 20250508
  Receipt Date: 20250604
  Transmission Date: 20250717
  Serious: Yes (Hospitalization, Other)
  Sender: AMGEN
  Company Number: US-AMGEN-USASL2024168074

PATIENT
  Age: 74 Year
  Sex: Female
  Weight: 90.703 kg

DRUGS (20)
  1. UPLIZNA [Suspect]
     Active Substance: INEBILIZUMAB-CDON
     Indication: Neuromyelitis optica spectrum disorder
     Dosage: 300 MILLIGRAM, Q2WK, (LOADING DOSE)
     Route: 042
     Dates: start: 20230324
  2. UPLIZNA [Suspect]
     Active Substance: INEBILIZUMAB-CDON
     Dosage: 300 MILLIGRAM, Q6MO (MAINTENANCE DOSE), EVERY 6 MONTHS FROM  24/MAR/2023
     Route: 042
     Dates: start: 20230922, end: 20230922
  3. UPLIZNA [Suspect]
     Active Substance: INEBILIZUMAB-CDON
     Dosage: 300 MILLIGRAM, Q6MO
     Route: 042
     Dates: start: 20240920, end: 20240920
  4. UPLIZNA [Suspect]
     Active Substance: INEBILIZUMAB-CDON
     Dosage: 300 MILLIGRAM, Q6MO
     Route: 042
     Dates: start: 20250114, end: 20250114
  5. PREDNISONE [Suspect]
     Active Substance: PREDNISONE
     Indication: Product used for unknown indication
     Dosage: 200 MILLIGRAM, BID X 2 DAYS
     Route: 065
  6. APIXABAN [Concomitant]
     Active Substance: APIXABAN
  7. ASPIRIN [Concomitant]
     Active Substance: ASPIRIN
  8. ATORVASTATIN [Concomitant]
     Active Substance: ATORVASTATIN
  9. BACILLUS COAGULANS [Concomitant]
     Active Substance: BACILLUS COAGULANS
  10. BIOTIN [Concomitant]
     Active Substance: BIOTIN
  11. CARISOPRODOL [Concomitant]
     Active Substance: CARISOPRODOL
  12. DIAZEPAM [Concomitant]
     Active Substance: DIAZEPAM
  13. DULOXETINE [Concomitant]
     Active Substance: DULOXETINE
  14. NURTEC ODT [Concomitant]
     Active Substance: RIMEGEPANT SULFATE
  15. PERCOCET [Concomitant]
     Active Substance: ACETAMINOPHEN\OXYCODONE HYDROCHLORIDE
  16. ZTLIDO [Concomitant]
     Active Substance: LIDOCAINE
  17. PFIZER-BIONTECH COVID-19 VACCINE [Concomitant]
     Active Substance: TOZINAMERAN
  18. ENSPRYNG [Concomitant]
     Active Substance: SATRALIZUMAB-MWGE
     Indication: Neuromyelitis optica spectrum disorder
     Route: 058
     Dates: start: 20250115
  19. BACLOFEN [Concomitant]
     Active Substance: BACLOFEN
  20. BENAZEPRIL [Concomitant]
     Active Substance: BENAZEPRIL HYDROCHLORIDE
     Route: 065

REACTIONS (3)
  - Neuromyelitis optica spectrum disorder [Unknown]
  - Accidental overdose [Recovered/Resolved]
  - Urinary tract infection [Unknown]

NARRATIVE: CASE EVENT DATE: 20240111
